FAERS Safety Report 8057202-5 (Version None)
Quarter: 2012Q1

REPORT INFORMATION
  Report Type: 
  Country: None (occurrence: None)
  Receive Date: 20120119
  Receipt Date: 20120110
  Transmission Date: 20120608
  Serious: Yes (Other)
  Sender: FDA-Public Use
  Company Number: PHHY2012GB002648

PATIENT
  Age: 57 Year
  Sex: Female

DRUGS (6)
  1. RAMIPRIL [Concomitant]
     Dosage: 5 MG, QD
  2. IMATINIB MESYLATE [Suspect]
     Indication: CHRONIC MYELOID LEUKAEMIA
     Dosage: 400 MG, QD
  3. LEVOTHYROXINE SODIUM [Concomitant]
     Dosage: 75 UG, UNK
  4. IMATINIB MESYLATE [Suspect]
     Dosage: 400 MG, QD
  5. IMATINIB MESYLATE [Suspect]
     Dosage: 200 MG
  6. IMATINIB MESYLATE [Suspect]
     Dosage: 200 MG,

REACTIONS (7)
  - PEMPHIGOID [None]
  - BLOOD BLISTER [None]
  - PAIN OF SKIN [None]
  - PIGMENTATION DISORDER [None]
  - EPIDERMOLYSIS BULLOSA [None]
  - PSEUDOPORPHYRIA [None]
  - BLISTER [None]
